FAERS Safety Report 7932173-8 (Version None)
Quarter: 2011Q4

REPORT INFORMATION
  Report Type: 
  Country: None (occurrence: None)
  Receive Date: 20111121
  Receipt Date: 20111115
  Transmission Date: 20120403
  Serious: Yes (Life-Threatening, Hospitalization, Other)
  Sender: FDA-Public Use
  Company Number: US-ASTRAZENECA-2011SE00412

PATIENT
  Age: 72 Year
  Sex: Female

DRUGS (3)
  1. TOPROL-XL [Suspect]
     Route: 048
  2. PULMICORT FLEXHALER [Suspect]
     Route: 055
  3. NEXIUM [Suspect]
     Route: 048

REACTIONS (11)
  - LUNG DISORDER [None]
  - RETCHING [None]
  - MUSCLE STRAIN [None]
  - GLAUCOMA [None]
  - COMA [None]
  - ULCER [None]
  - VOMITING [None]
  - DIARRHOEA [None]
  - FALL [None]
  - ORBITAL CYST [None]
  - MALAISE [None]
